FAERS Safety Report 12585773 (Version 1)
Quarter: 2016Q3

REPORT INFORMATION
  Report Type: Spontaneous
  Country: MK (occurrence: MK)
  Receive Date: 20160725
  Receipt Date: 20160725
  Transmission Date: 20161109
  Serious: Yes (Other)
  Sender: FDA-Public Use
  Company Number: MK-ROCHE-1800119

PATIENT
  Age: 60 Year
  Sex: Male

DRUGS (1)
  1. AVASTIN [Suspect]
     Active Substance: BEVACIZUMAB
     Indication: AGE-RELATED MACULAR DEGENERATION
     Route: 050
     Dates: start: 20160713, end: 20160713

REACTIONS (3)
  - Endophthalmitis [Unknown]
  - Off label use [Unknown]
  - Hypopyon [Unknown]

NARRATIVE: CASE EVENT DATE: 20160718
